FAERS Safety Report 8968021 (Version 1)
Quarter: 2012Q4

REPORT INFORMATION
  Report Type: Spontaneous
  Country: US (occurrence: None)
  Receive Date: 20121214
  Receipt Date: 20121214
  Transmission Date: 20130627
  Serious: Yes (Life-Threatening)
  Sender: FDA-Public Use
  Company Number: None

PATIENT
  Sex: Male
  Weight: 77.11 kg

DRUGS (2)
  1. ATORVASTATIN [Suspect]
     Dosage: once daily
  2. ATORVASTATIN, 20 MG, MYLAN [Suspect]
     Dosage: once daily

REACTIONS (2)
  - Product substitution issue [None]
  - Blood cholesterol increased [None]
